FAERS Safety Report 9773027 (Version 1)
Quarter: 2013Q4

REPORT INFORMATION
  Report Type: Spontaneous
  Country: US (occurrence: None)
  Receive Date: 20131218
  Receipt Date: 20131218
  Transmission Date: 20140711
  Serious: Yes (Other)
  Sender: FDA-Public Use
  Company Number: None

PATIENT
  Sex: 0

DRUGS (1)
  1. GAVILYTE G TM [Suspect]
     Indication: COLONOSCOPY
     Dates: start: 20110710

REACTIONS (1)
  - Meniere^s disease [None]
